FAERS Safety Report 20740901 (Version 1)
Quarter: 2022Q2

REPORT INFORMATION
  Report Type: Spontaneous
  Country: US (occurrence: US)
  Receive Date: 20220422
  Receipt Date: 20220422
  Transmission Date: 20220721
  Serious: No
  Sender: FDA-Public Use
  Company Number: US-LANNETT COMPANY, INC.-US-2021LAN000186

PATIENT
  Sex: Female

DRUGS (1)
  1. LEVOTHYROXINE SODIUM [Suspect]
     Active Substance: LEVOTHYROXINE SODIUM
     Indication: Product used for unknown indication
     Dosage: 25 ?G, QD
     Route: 048

REACTIONS (6)
  - Stomatitis [Unknown]
  - Tinnitus [Unknown]
  - Flatulence [Unknown]
  - Drug hypersensitivity [Unknown]
  - Unevaluable event [Unknown]
  - Headache [Unknown]
